FAERS Safety Report 15535221 (Version 1)
Quarter: 2018Q4

REPORT INFORMATION
  Report Type: Spontaneous
  Country: US (occurrence: US)
  Receive Date: 20181022
  Receipt Date: 20181022
  Transmission Date: 20190205
  Serious: No
  Sender: FDA-Public Use
  Company Number: US-BIOGEN-2018BI00646838

PATIENT
  Sex: Female

DRUGS (1)
  1. AVONEX [Suspect]
     Active Substance: INTERFERON BETA-1A
     Indication: MULTIPLE SCLEROSIS
     Route: 065
     Dates: start: 20170818

REACTIONS (5)
  - Influenza like illness [Unknown]
  - Muscular weakness [Unknown]
  - Product complaint [Unknown]
  - Product dose omission [Recovered/Resolved]
  - Muscle spasms [Unknown]
